FAERS Safety Report 4750948-3 (Version None)
Quarter: 2005Q3

REPORT INFORMATION
  Report Type: 
  Country: None (occurrence: None)
  Receive Date: 20050822
  Receipt Date: 20050809
  Transmission Date: 20060218
  Serious: Yes (Hospitalization, Congenital Anomaly, Other)
  Sender: FDA-Public Use
  Company Number: 2005113762

PATIENT
  Sex: Female
  Weight: 47.1741 kg

DRUGS (14)
  1. CELEBREX [Suspect]
     Indication: ARTHRITIS
  2. NEURONTIN [Suspect]
     Indication: EPILEPSY
  3. XALATAN [Suspect]
     Indication: INTRAOCULAR PRESSURE INCREASED
  4. ANTIVERT [Suspect]
     Indication: INNER EAR DISORDER
  5. PREMARIN [Concomitant]
  6. PREDNISONE [Concomitant]
  7. LEVOXYL [Concomitant]
  8. FOSAMAX [Concomitant]
  9. EFFEXOR [Concomitant]
  10. LOMOTIL [Concomitant]
  11. VALIUM [Concomitant]
  12. PLAVIX [Concomitant]
  13. DEMADEX [Concomitant]
  14. ACIPHEX [Concomitant]

REACTIONS (21)
  - ABDOMINAL PAIN [None]
  - ARTHRALGIA [None]
  - BACTERIAL INFECTION [None]
  - CATARACT [None]
  - CONCUSSION [None]
  - DRUG INEFFECTIVE [None]
  - EPILEPSY [None]
  - FALL [None]
  - HIATUS HERNIA [None]
  - INNER EAR DISORDER [None]
  - INTESTINAL PERFORATION [None]
  - INTRAOCULAR PRESSURE INCREASED [None]
  - JOINT DISLOCATION [None]
  - LOSS OF CONSCIOUSNESS [None]
  - RECTAL PROLAPSE [None]
  - ROAD TRAFFIC ACCIDENT [None]
  - ROTATOR CUFF SYNDROME [None]
  - SHOULDER PAIN [None]
  - SKIN LACERATION [None]
  - TENDON RUPTURE [None]
  - VOLVULUS OF BOWEL [None]
